FAERS Safety Report 9692515 (Version 1)
Quarter: 2013Q4

REPORT INFORMATION
  Report Type: Report from Study
  Country: ES (occurrence: ES)
  Receive Date: 20131118
  Receipt Date: 20131118
  Transmission Date: 20140711
  Serious: Yes (Death)
  Sender: FDA-Public Use
  Company Number: ES-BAYER-2013-140727

PATIENT
  Age: 84 Year
  Sex: Male
  Weight: 50 kg

DRUGS (9)
  1. REGORAFENIB [Suspect]
     Indication: COLORECTAL CANCER METASTATIC
     Dosage: 160 MG, QD
     Route: 048
     Dates: start: 20131003, end: 20131107
  2. LISINOPRIL [Concomitant]
     Indication: HYPERTENSION
     Dosage: 20 MG, BID
     Route: 048
     Dates: start: 20131024, end: 20131104
  3. NOVODIL [Concomitant]
     Indication: ARTHRITIS
     Dosage: 1150 MG, TID
     Route: 048
     Dates: start: 20131003, end: 20131007
  4. PARACETAMOL [Concomitant]
     Indication: ARTHRITIS
     Dosage: 1 G, TID
     Route: 048
     Dates: end: 20131107
  5. INACID [Concomitant]
     Indication: ARTHRITIS
     Dosage: 20 MG, BID
     Route: 048
     Dates: end: 20131107
  6. SYMBICORT [Concomitant]
     Indication: DYSPNOEA EXERTIONAL
     Dosage: 2 PUFF(S), QD
     Route: 055
     Dates: end: 20131107
  7. OMEPRAZOLE [Concomitant]
     Indication: PROPHYLAXIS
     Dosage: 20 MG, QD
     Route: 048
     Dates: end: 20131107
  8. METHOTREXAT [METHOTREXATE] [Concomitant]
     Indication: ARTHRITIS
     Dosage: 10 MG, OW
     Route: 048
     Dates: end: 20131107
  9. FOLIC ACID [Concomitant]
     Indication: ARTHRITIS
     Dosage: 5 MG, BID
     Route: 048
     Dates: end: 20131107

REACTIONS (1)
  - Sudden death [Fatal]
